FAERS Safety Report 18694511 (Version 2)
Quarter: 2021Q1

REPORT INFORMATION
  Report Type: Spontaneous
  Country: GR (occurrence: GR)
  Receive Date: 20210104
  Receipt Date: 20210209
  Transmission Date: 20210419
  Serious: Yes (Hospitalization)
  Sender: FDA-Public Use
  Company Number: GR-MYLANLABS-2020M1106223

PATIENT
  Age: 79 Year
  Sex: Male

DRUGS (7)
  1. TASIGNA [Concomitant]
     Active Substance: NILOTINIB
     Indication: LEUKAEMIA
     Dosage: 150 MILLIGRAM, BID
     Route: 048
     Dates: start: 2012, end: 20201215
  2. LOPRESS                            /00338402/ [Suspect]
     Active Substance: PRAZOSIN HYDROCHLORIDE
     Indication: ATRIAL FIBRILLATION
     Dosage: UNK, BID
     Route: 048
  3. ELIQUIS [Concomitant]
     Active Substance: APIXABAN
     Dosage: UNK
  4. ANTORCIN [Concomitant]
     Active Substance: ATORVASTATIN CALCIUM
     Dosage: UNK
  5. PROPAFENONE HCL [Suspect]
     Active Substance: PROPAFENONE HYDROCHLORIDE
     Indication: ATRIAL FIBRILLATION
     Dosage: 150 MILLIGRAM, Q6H
     Route: 048
     Dates: start: 202012
  6. PROPAFENONE HCL [Suspect]
     Active Substance: PROPAFENONE HYDROCHLORIDE
     Dosage: 425 MILLIGRAM
     Route: 048
  7. TRAJENTA [Concomitant]
     Active Substance: LINAGLIPTIN
     Dosage: UNK

REACTIONS (2)
  - Drug ineffective [Unknown]
  - Blindness [Not Recovered/Not Resolved]

NARRATIVE: CASE EVENT DATE: 20201215
